FAERS Safety Report 15918637 (Version 2)
Quarter: 2019Q1

REPORT INFORMATION
  Report Type: Spontaneous
  Country: US (occurrence: US)
  Receive Date: 20190205
  Receipt Date: 20190222
  Transmission Date: 20190417
  Serious: No
  Sender: FDA-Public Use
  Company Number: US-BAYER-2019-025507

PATIENT
  Age: 34 Year
  Sex: Male

DRUGS (4)
  1. NAPROXEN. [Concomitant]
     Active Substance: NAPROXEN
  2. GADAVIST [Suspect]
     Active Substance: GADOBUTROL
     Indication: POSTOPERATIVE WOUND INFECTION
     Dosage: 10 ML
     Route: 042
     Dates: start: 20190125, end: 20190125
  3. ALBUTEROL [SALBUTAMOL] [Concomitant]
     Active Substance: ALBUTEROL
  4. CODEINE [Concomitant]
     Active Substance: CODEINE

REACTIONS (2)
  - Urticaria [Recovered/Resolved]
  - Pruritus [None]

NARRATIVE: CASE EVENT DATE: 20190125
